FAERS Safety Report 19892502 (Version 2)
Quarter: 2021Q4

REPORT INFORMATION
  Report Type: Spontaneous
  Country: US (occurrence: US)
  Receive Date: 20210929
  Receipt Date: 20211016
  Transmission Date: 20220303
  Serious: No
  Sender: FDA-Public Use
  Company Number: US-JNJFOC-20210938374

PATIENT
  Age: 54 Year
  Sex: Male
  Weight: 92.53 kg

DRUGS (5)
  1. MOTRIN [Suspect]
     Active Substance: IBUPROFEN
     Indication: Arthralgia
     Dosage: MOTRIN IB 200MG THREE TIMES A DAY
     Route: 065
     Dates: start: 202103
  2. COVID-19 VACCINE [Concomitant]
     Indication: Prophylaxis
     Dosage: UNKNOWN DOSE, INJECTION IN RIGHT ARM
     Route: 065
     Dates: start: 20210319
  3. COVID-19 VACCINE [Concomitant]
     Route: 065
     Dates: start: 20210409
  4. MELOXICAM [Concomitant]
     Active Substance: MELOXICAM
     Indication: Arthralgia
     Route: 065
  5. DICLOFENAC [Concomitant]
     Active Substance: DICLOFENAC
     Indication: Arthralgia
     Route: 065

REACTIONS (1)
  - Therapeutic product effect incomplete [Unknown]

NARRATIVE: CASE EVENT DATE: 20210301
